FAERS Safety Report 15280897 (Version 2)
Quarter: 2018Q4

REPORT INFORMATION
  Report Type: Spontaneous
  Country: US (occurrence: US)
  Receive Date: 20180815
  Receipt Date: 20181115
  Transmission Date: 20190204
  Serious: No
  Sender: FDA-Public Use
  Company Number: US-SYNERGY PHARMACEUTICALS INC-US-2018SNG000181

PATIENT

DRUGS (2)
  1. TRULANCE [Suspect]
     Active Substance: PLECANATIDE
     Indication: CONSTIPATION
     Dosage: 3 MG, QD
     Route: 048
     Dates: start: 20180716, end: 20180720
  2. TRULANCE [Suspect]
     Active Substance: PLECANATIDE
     Indication: PROSTATIC OPERATION

REACTIONS (11)
  - Flatulence [Unknown]
  - Abdominal pain [Not Recovered/Not Resolved]
  - Tinnitus [Unknown]
  - Oral discomfort [Not Recovered/Not Resolved]
  - Faeces discoloured [Unknown]
  - Fatigue [Unknown]
  - Asthenia [Unknown]
  - Diarrhoea [Recovered/Resolved]
  - Product use in unapproved indication [Unknown]
  - Abdominal distension [Unknown]
  - Abdominal discomfort [Unknown]

NARRATIVE: CASE EVENT DATE: 201807
